FAERS Safety Report 4828374-8 (Version None)
Quarter: 2005Q4

REPORT INFORMATION
  Report Type: 
  Country: None (occurrence: None)
  Receive Date: 20051115
  Receipt Date: 20030130
  Transmission Date: 20060501
  Serious: Yes (Hospitalization, Other)
  Sender: FDA-Public Use
  Company Number: US-MERCK-0302USA00104

PATIENT
  Age: 66 Year
  Sex: Female
  Weight: 68 kg

DRUGS (16)
  1. LOMOTIL [Concomitant]
     Indication: DIARRHOEA
     Route: 065
  2. PAMELOR [Concomitant]
     Indication: SLEEP DISORDER
     Route: 065
     Dates: start: 19990817
  3. MELATONIN [Concomitant]
     Route: 065
  4. AVANDIA [Concomitant]
     Route: 065
  5. VIOXX [Suspect]
     Indication: RHEUMATOID ARTHRITIS
     Route: 048
     Dates: start: 19990817, end: 20011101
  6. VIOXX [Suspect]
     Route: 048
     Dates: start: 20020401
  7. INSULIN [Concomitant]
     Indication: DIABETES MELLITUS
     Route: 065
  8. SYNTHROID [Concomitant]
     Indication: THYROID DISORDER
     Route: 065
  9. ASPIRIN [Concomitant]
     Route: 065
     Dates: start: 19980101, end: 20000505
  10. ASPIRIN [Concomitant]
     Route: 065
     Dates: start: 20010101, end: 20030728
  11. ZOCOR [Concomitant]
     Indication: BLOOD TRIGLYCERIDES INCREASED
     Route: 048
     Dates: start: 20010901, end: 20011101
  12. ZOCOR [Concomitant]
     Route: 048
     Dates: end: 20010821
  13. ZOCOR [Concomitant]
     Route: 048
     Dates: start: 20011101, end: 20030728
  14. ZOCOR [Concomitant]
     Route: 048
     Dates: start: 19971212
  15. PRILOSEC [Concomitant]
     Route: 065
  16. KENALOG [Concomitant]
     Route: 030

REACTIONS (48)
  - ABDOMINAL PAIN [None]
  - ACUTE SINUSITIS [None]
  - ANGINA PECTORIS [None]
  - ARTHRALGIA [None]
  - ARTHRITIS [None]
  - ASTHENIA [None]
  - BREAST MASS [None]
  - BURSITIS [None]
  - CAROTID ARTERY DISEASE [None]
  - CAROTID ARTERY STENOSIS [None]
  - CATARACT [None]
  - CORONARY ARTERY DISEASE [None]
  - DEAFNESS NEUROSENSORY [None]
  - DIZZINESS [None]
  - DRUG INEFFECTIVE [None]
  - DYSPNOEA EXERTIONAL [None]
  - EPISTAXIS [None]
  - GANGLION [None]
  - GASTROOESOPHAGEAL REFLUX DISEASE [None]
  - GINGIVAL BLEEDING [None]
  - HEADACHE [None]
  - HYPERGLYCAEMIA [None]
  - HYPERTENSION [None]
  - HYPOGLYCAEMIA [None]
  - INCREASED TENDENCY TO BRUISE [None]
  - INFLUENZA [None]
  - INGROWING NAIL [None]
  - INJURY [None]
  - LYMPHADENOPATHY [None]
  - MUSCLE FATIGUE [None]
  - MUSCLE SPASMS [None]
  - MUSCULOSKELETAL STIFFNESS [None]
  - MYALGIA [None]
  - NASAL SEPTUM DEVIATION [None]
  - NAUSEA [None]
  - NOCTURIA [None]
  - OEDEMA [None]
  - OEDEMA PERIPHERAL [None]
  - PALPITATIONS [None]
  - RHEUMATOID ARTHRITIS [None]
  - SINUS DISORDER [None]
  - TACHYCARDIA [None]
  - TENDON RUPTURE [None]
  - TENDONITIS [None]
  - TINNITUS [None]
  - TRANSIENT ISCHAEMIC ATTACK [None]
  - VERTIGO POSITIONAL [None]
  - WEIGHT INCREASED [None]
